FAERS Safety Report 8059119-9 (Version None)
Quarter: 2012Q1

REPORT INFORMATION
  Report Type: 
  Country: None (occurrence: None)
  Receive Date: 20120119
  Receipt Date: 20120119
  Transmission Date: 20120608
  Serious: No
  Sender: FDA-Public Use
  Company Number: None

PATIENT
  Age: 71 Year
  Sex: Male
  Weight: 108.8633 kg

DRUGS (1)
  1. METFORMIN HCL [Suspect]

REACTIONS (2)
  - BLOOD PRESSURE DECREASED [None]
  - DIARRHOEA [None]
